FAERS Safety Report 4587552-6 (Version None)
Quarter: 2005Q1

REPORT INFORMATION
  Report Type: 
  Country: None (occurrence: None)
  Receive Date: 20050215
  Receipt Date: 20031104
  Transmission Date: 20050727
  Serious: No
  Sender: FDA-Public Use
  Company Number: C03-T-080

PATIENT

DRUGS (1)
  1. TRAMADOL HCL [Suspect]

REACTIONS (2)
  - DYSGEUSIA [None]
  - PHARYNGITIS [None]
